FAERS Safety Report 6698648-7 (Version None)
Quarter: 2010Q2

REPORT INFORMATION
  Report Type: 
  Country: None (occurrence: None)
  Receive Date: 20100427
  Receipt Date: 20100415
  Transmission Date: 20101027
  Serious: Yes (Other)
  Sender: FDA-Public Use
  Company Number: US-PFIZER INC-2010048612

PATIENT
  Age: 21 Year
  Sex: Male

DRUGS (2)
  1. XANAX [Suspect]
     Indication: AGORAPHOBIA
     Dosage: UNK
     Route: 048
  2. GEODON [Suspect]
     Indication: AGORAPHOBIA
     Dosage: UNK
     Dates: start: 20100401

REACTIONS (2)
  - PSYCHOMOTOR SKILLS IMPAIRED [None]
  - SOMNOLENCE [None]
